FAERS Safety Report 13137296 (Version 1)
Quarter: 2017Q1

REPORT INFORMATION
  Report Type: Spontaneous
  Country: FR (occurrence: FR)
  Receive Date: 20170123
  Receipt Date: 20170123
  Transmission Date: 20170428
  Serious: Yes (Life-Threatening)
  Sender: FDA-Public Use
  Company Number: FR-AUROBINDO-AUR-APL-2017-01377

PATIENT
  Age: 56 Year
  Sex: Male

DRUGS (2)
  1. AZANTAC [Suspect]
     Active Substance: RANITIDINE HYDROCHLORIDE
     Indication: PRODUCT USED FOR UNKNOWN INDICATION
     Dosage: 50 MG, 3 TIMES A DAY
     Route: 041
     Dates: start: 20120929, end: 20121029
  2. CETIRIZINE [Suspect]
     Active Substance: CETIRIZINE HYDROCHLORIDE
     Indication: HYPERSENSITIVITY
     Dosage: UNK
     Route: 048
     Dates: start: 20121003, end: 20121021

REACTIONS (3)
  - Cardio-respiratory arrest [Recovered/Resolved]
  - Bradycardia [None]
  - Presyncope [None]

NARRATIVE: CASE EVENT DATE: 20121020
